FAERS Safety Report 9612552 (Version 1)
Quarter: 2013Q4

REPORT INFORMATION
  Report Type: Spontaneous
  Country: US (occurrence: US)
  Receive Date: 20131010
  Receipt Date: 20131010
  Transmission Date: 20140711
  Serious: No
  Sender: FDA-Public Use
  Company Number: US-009507513-1309USA004505

PATIENT
  Age: 76 Year
  Sex: Female

DRUGS (2)
  1. ZIOPTAN [Suspect]
     Indication: GLAUCOMA
     Dosage: ONE DROP IN BOTH EYES IN THE EVENING
     Route: 047
     Dates: start: 20130810
  2. LEVOTHYROXINE SODIUM [Concomitant]
     Dosage: UNK
     Route: 048

REACTIONS (4)
  - Eye irritation [Not Recovered/Not Resolved]
  - Eyelid disorder [Not Recovered/Not Resolved]
  - Chest discomfort [Not Recovered/Not Resolved]
  - Nasal discomfort [Not Recovered/Not Resolved]
